FAERS Safety Report 18058902 (Version 1)
Quarter: 2020Q3

REPORT INFORMATION
  Report Type: Spontaneous
  Country: NL (occurrence: NL)
  Receive Date: 20200723
  Receipt Date: 20200723
  Transmission Date: 20201103
  Serious: Yes (Life-Threatening, Hospitalization)
  Sender: FDA-Public Use
  Company Number: NL-MYLANLABS-2020M1065143

PATIENT
  Sex: Female
  Weight: 59 kg

DRUGS (17)
  1. CHLORELLA                          /01723301/ [Concomitant]
     Active Substance: CHLORELLA VULGARIS
     Dosage: VARIOUS DOSAGE
     Route: 048
     Dates: start: 201212
  2. VITAMIN B [Concomitant]
     Active Substance: VITAMIN B
     Dosage: VARIOUS DOSAGE
     Route: 048
     Dates: start: 201212
  3. VITAMIN B [Concomitant]
     Active Substance: VITAMIN B
     Dosage: VARIOUS DOSAGE
     Route: 048
     Dates: start: 201212
  4. SELENIUM [Concomitant]
     Active Substance: SELENIUM
     Indication: PRODUCT USED FOR UNKNOWN INDICATION
     Dosage: VARIOUS DOSAGE
     Route: 048
     Dates: start: 201212
  5. CHLORELLA                          /01723301/ [Concomitant]
     Active Substance: CHLORELLA VULGARIS
     Dosage: VARIOUS DOSAGE
     Route: 048
     Dates: start: 201212
  6. MAGNESIUM CHLORIDE. [Concomitant]
     Active Substance: MAGNESIUM CHLORIDE
     Dosage: VARIOUS DOSAGE
     Route: 048
     Dates: start: 201212
  7. Q10 [Concomitant]
     Active Substance: DIETARY SUPPLEMENT\UBIDECARENONE
     Indication: PRODUCT USED FOR UNKNOWN INDICATION
     Dosage: VARIOUS DOSAGE
     Route: 048
     Dates: start: 201212
  8. VITAMIN B [Concomitant]
     Active Substance: VITAMIN B
     Indication: PRODUCT USED FOR UNKNOWN INDICATION
     Dosage: VARIOUS DOSAGE
     Route: 048
     Dates: start: 201212
  9. Q10 [Concomitant]
     Active Substance: DIETARY SUPPLEMENT\UBIDECARENONE
     Dosage: VARIOUS DOSAGE
     Route: 048
     Dates: start: 201212
  10. CHLORELLA                          /01723301/ [Concomitant]
     Active Substance: CHLORELLA VULGARIS
     Indication: PRODUCT USED FOR UNKNOWN INDICATION
     Dosage: VARIOUS DOSAGE
     Route: 048
     Dates: start: 201212
  11. EPIRUBICIN [Suspect]
     Active Substance: EPIRUBICIN
     Indication: BREAST CANCER
     Dosage: 3 COURSES WITH 3 WEEKS BETWEEN THEM; INFUSION; FEC THERAPY
     Route: 042
     Dates: start: 20130403
  12. FLUOROURACIL. [Suspect]
     Active Substance: FLUOROURACIL
     Indication: BREAST CANCER
     Dosage: 3 COURSES WITH 3 WEEKS BETWEEN THEM; INFUSION; FEC THERAPY
     Route: 042
     Dates: start: 20130403
  13. TAXOTERE [Suspect]
     Active Substance: DOCETAXEL
     Indication: BREAST CANCER
     Dosage: CONC V INFVLST 40MG/ML FL0,5ML+SOLV 1,5ML; 2 COURSES
     Route: 042
     Dates: start: 201304
  14. ENDOXAN                            /00021102/ [Suspect]
     Active Substance: CYCLOPHOSPHAMIDE
     Indication: BREAST CANCER
     Dosage: 3 COURSES WITH 3 WEEKS BETWEEN THEM; INTRAVENOUS INFUSION; FEC THERAPY
     Route: 042
     Dates: start: 20130403
  15. SELENIUM [Concomitant]
     Active Substance: SELENIUM
     Dosage: VARIOUS DOSAGE
     Route: 048
     Dates: start: 201212
  16. MAGNESIUM CHLORIDE. [Concomitant]
     Active Substance: MAGNESIUM CHLORIDE
     Indication: PRODUCT USED FOR UNKNOWN INDICATION
     Dosage: VARIOUS DOSAGE
     Route: 048
     Dates: start: 201212
  17. Q10 [Concomitant]
     Active Substance: DIETARY SUPPLEMENT\UBIDECARENONE
     Dosage: VARIOUS DOSAGE
     Route: 048
     Dates: start: 201212

REACTIONS (2)
  - Sense of oppression [Unknown]
  - Cardiac failure [Not Recovered/Not Resolved]

NARRATIVE: CASE EVENT DATE: 2013
